FAERS Safety Report 14880808 (Version 1)
Quarter: 2018Q2

REPORT INFORMATION
  Report Type: Spontaneous
  Country: US (occurrence: US)
  Receive Date: 20180425
  Receipt Date: 20180425
  Transmission Date: 20180711
  Serious: Yes (Life-Threatening, Disabling, Other)
  Sender: FDA-Public Use
  Company Number: None

PATIENT
  Age: 42 Year
  Sex: Female
  Weight: 63.9 kg

DRUGS (2)
  1. LAMOTRIGINE 25 MG TABLETS [Suspect]
     Active Substance: LAMOTRIGINE
     Indication: AFFECTIVE DISORDER
     Route: 048
     Dates: start: 20161117, end: 20170625
  2. PRISTIQ EXTENDED-RELEASE [Concomitant]
     Active Substance: DESVENLAFAXINE SUCCINATE

REACTIONS (9)
  - Nephrolithiasis [None]
  - Dizziness [None]
  - Visual impairment [None]
  - Nervousness [None]
  - Asthenia [None]
  - Infection [None]
  - Rash [None]
  - Antinuclear antibody increased [None]
  - Irritability [None]

NARRATIVE: CASE EVENT DATE: 20170616
